FAERS Safety Report 24051558 (Version 3)
Quarter: 2024Q3

REPORT INFORMATION
  Report Type: Report from Study
  Country: PE (occurrence: PE)
  Receive Date: 20240704
  Receipt Date: 20240723
  Transmission Date: 20241017
  Serious: Yes (Hospitalization, Other)
  Sender: JOHNSON AND JOHNSON
  Company Number: PE-JNJFOC-20240675206

PATIENT
  Age: 71 Year
  Sex: Female

DRUGS (2)
  1. SPRAVATO [Suspect]
     Active Substance: ESKETAMINE
     Indication: Depression
     Dates: start: 20231018
  2. SPRAVATO [Suspect]
     Active Substance: ESKETAMINE
     Dosage: 1 A WEEK OR EVERY 2 WEEKS
     Dates: end: 20240520

REACTIONS (2)
  - Suicide attempt [Not Recovered/Not Resolved]
  - Treatment failure [Unknown]

NARRATIVE: CASE EVENT DATE: 20240101
